FAERS Safety Report 9529791 (Version 3)
Quarter: 2013Q4

REPORT INFORMATION
  Report Type: Report from Study
  Country: US (occurrence: US)
  Receive Date: 20130917
  Receipt Date: 20131007
  Transmission Date: 20140711
  Serious: Yes (Hospitalization, Other)
  Sender: FDA-Public Use
  Company Number: US-ACTELION-A-CH2012-74598

PATIENT
  Age: 55 Year
  Sex: Female
  Weight: 58.5 kg

DRUGS (24)
  1. BOSENTAN [Suspect]
     Indication: PULMONARY ARTERIAL HYPERTENSION
     Dosage: 125 MG, BID
     Route: 048
     Dates: start: 20110706, end: 20130415
  2. BOSENTAN [Suspect]
     Dosage: 62.5 MG, BID
     Route: 048
     Dates: start: 20110527, end: 20110705
  3. VELETRI [Suspect]
     Indication: PULMONARY ARTERIAL HYPERTENSION
     Dosage: 24 NG/KG, PER MIN
     Route: 041
     Dates: start: 20120705
  4. SILDENAFIL [Concomitant]
     Dosage: 20 MG, TID
     Dates: start: 20100605
  5. DIGOXIN [Concomitant]
     Dosage: UNK
     Dates: start: 20120703
  6. FENTANYL [Concomitant]
     Dosage: UNK
     Dates: start: 20080328
  7. LEVOTHYROXINE [Concomitant]
     Dosage: UNK
     Dates: start: 20070601
  8. TIZANIDINE [Concomitant]
     Dosage: UNK
     Dates: start: 20031212
  9. VITAMIN D [Concomitant]
     Dosage: UNK
     Dates: start: 20090901
  10. MULTIVITAMIN [Concomitant]
     Dosage: UNK
     Dates: start: 19780101
  11. MAGNESIUM [Concomitant]
     Dosage: UNK
     Dates: start: 20090910
  12. CALCIUM PLUS [Concomitant]
     Dosage: UNK
     Dates: start: 20090901
  13. ALPRAZOLAM [Concomitant]
     Dosage: UNK
     Dates: start: 20090520
  14. HYDROCODONE [Concomitant]
  15. ROPINIROLE [Concomitant]
     Dosage: UNK
     Dates: start: 20110208
  16. LANSOPRAZOLE [Concomitant]
     Dosage: UNK
     Dates: start: 20110106
  17. ASPIRIN [Concomitant]
     Dosage: UNK
     Dates: start: 20110523
  18. PREDNISONE [Concomitant]
     Dosage: UNK
     Dates: start: 20110312
  19. TRAZODONE [Concomitant]
     Dosage: UNK
     Dates: start: 20110530
  20. MYCOPHENOLATE MOFETIL [Concomitant]
     Dosage: UNK
     Dates: start: 20110614
  21. FERROUS SULFATE [Concomitant]
     Dosage: UNK
     Dates: start: 20110616
  22. POTASSIUM CHLORIDE [Concomitant]
     Dosage: UNK
     Dates: start: 20110621
  23. OXYGEN [Concomitant]
     Dosage: UNK
     Dates: start: 20110617
  24. FISH OIL [Concomitant]
     Dosage: UNK
     Dates: start: 20110924

REACTIONS (6)
  - Intussusception [Recovered/Resolved]
  - Dyspnoea [Recovered/Resolved]
  - Weight increased [Recovered/Resolved]
  - Abdominal pain lower [Recovered/Resolved]
  - Nausea [Recovered/Resolved]
  - Vomiting [Recovered/Resolved]
